FAERS Safety Report 13108516 (Version 1)
Quarter: 2017Q1

REPORT INFORMATION
  Report Type: Spontaneous
  Country: US (occurrence: US)
  Receive Date: 20170111
  Receipt Date: 20170111
  Transmission Date: 20170428
  Serious: No
  Sender: FDA-Public Use
  Company Number: None

PATIENT
  Age: 26 Year
  Sex: Female
  Weight: 63 kg

DRUGS (3)
  1. ALBUTEROL INHALER [Concomitant]
     Active Substance: ALBUTEROL
  2. LINZESS [Suspect]
     Active Substance: LINACLOTIDE
     Indication: IRRITABLE BOWEL SYNDROME
     Dosage: ?          QUANTITY:1 CAPSULE(S);?
     Route: 048
     Dates: start: 20161007, end: 20161031
  3. AMITIZA [Suspect]
     Active Substance: LUBIPROSTONE
     Indication: IRRITABLE BOWEL SYNDROME
     Dosage: ?          QUANTITY:2 TABLET(S);?
     Route: 048
     Dates: start: 20161128, end: 20161209

REACTIONS (10)
  - Constipation [None]
  - Headache [None]
  - Decreased appetite [None]
  - Abdominal pain [None]
  - Exposure during pregnancy [None]
  - Fatigue [None]
  - Nausea [None]
  - Gastrooesophageal reflux disease [None]
  - Abdominal distension [None]
  - Condition aggravated [None]

NARRATIVE: CASE EVENT DATE: 20161012
